FAERS Safety Report 8103122-7 (Version None)
Quarter: 2012Q1

REPORT INFORMATION
  Report Type: 
  Country: None (occurrence: None)
  Receive Date: 20120201
  Receipt Date: 20120119
  Transmission Date: 20120608
  Serious: Yes (Hospitalization)
  Sender: FDA-Public Use
  Company Number: US-ACTELION-A-US2011-55947

PATIENT

DRUGS (2)
  1. METHIMAZOLE [Concomitant]
  2. TRACLEER [Suspect]
     Indication: PULMONARY ARTERIAL HYPERTENSION
     Dosage: 125 MG, BID
     Route: 048
     Dates: start: 20091208

REACTIONS (5)
  - ABDOMINAL PAIN [None]
  - PANCREATITIS [None]
  - VOMITING [None]
  - NAUSEA [None]
  - PULMONARY ARTERIAL HYPERTENSION [None]
